FAERS Safety Report 23985785 (Version 3)
Quarter: 2024Q3

REPORT INFORMATION
  Report Type: Spontaneous
  Country: US (occurrence: US)
  Receive Date: 20240618
  Receipt Date: 20240919
  Transmission Date: 20241016
  Serious: No
  Sender: PFIZER
  Company Number: US-PFIZER INC-202400192554

PATIENT
  Age: 21 Year
  Sex: Female

DRUGS (1)
  1. GENOTROPIN [Suspect]
     Active Substance: SOMATROPIN
     Dosage: 0.4 MG, DAILY

REACTIONS (4)
  - Incorrect dose administered by device [Unknown]
  - Device use error [Unknown]
  - Device information output issue [Unknown]
  - Device mechanical issue [Unknown]
